FAERS Safety Report 6608936-8 (Version None)
Quarter: 2010Q1

REPORT INFORMATION
  Report Type: 
  Country: None (occurrence: None)
  Receive Date: 20100301
  Receipt Date: 20100226
  Transmission Date: 20100710
  Serious: Yes (Hospitalization, Other)
  Sender: FDA-Public Use
  Company Number: GB-ROXANE LABORATORIES, INC.-2010-RO-00209RO

PATIENT
  Age: 18 Month
  Sex: Female
  Weight: 11 kg

DRUGS (3)
  1. PROPRANOLOL HYDROCHLORIDE [Suspect]
     Indication: VENTRICULAR TACHYCARDIA
     Dosage: 75 MG
  2. FLECAINIDE [Suspect]
     Indication: VENTRICULAR TACHYCARDIA
  3. GLUCOSE [Concomitant]
     Indication: HYPOGLYCAEMIA
     Route: 042

REACTIONS (3)
  - HYPOGLYCAEMIA [None]
  - SYNCOPE [None]
  - VIRAL INFECTION [None]
